FAERS Safety Report 11895479 (Version 1)
Quarter: 2016Q1

REPORT INFORMATION
  Report Type: Spontaneous
  Country: US (occurrence: US)
  Receive Date: 20160107
  Receipt Date: 20160107
  Transmission Date: 20160526
  Serious: No
  Sender: FDA-Public Use
  Company Number: US-ASTRAZENECA-2015SF31978

PATIENT
  Age: 730 Month
  Sex: Female
  Weight: 63.5 kg

DRUGS (23)
  1. CALCIUM [Concomitant]
     Active Substance: CALCIUM
     Indication: VITAMIN SUPPLEMENTATION
     Dosage: DAILY
  2. FISH OIL [Concomitant]
     Active Substance: FISH OIL
     Indication: CARDIOVASCULAR EVENT PROPHYLAXIS
  3. HYDROCODONE [Concomitant]
     Active Substance: HYDROCODONE
     Indication: HEADACHE
     Dosage: 10 MG, 1 TO 2 TABLETS EVERY 3 TO 4 HOURS AS NEEDED
  4. HYDROCODONE [Concomitant]
     Active Substance: HYDROCODONE
     Indication: GINGIVAL PAIN
     Dosage: 10 MG, 1 TO 2 TABLETS EVERY 6 HOURS AS NEEDED
  5. HARVONI [Concomitant]
     Active Substance: LEDIPASVIR\SOFOSBUVIR
     Indication: HEPATITIS C
     Dates: start: 201506, end: 201509
  6. HYDROCODONE [Concomitant]
     Active Substance: HYDROCODONE
     Indication: GINGIVAL PAIN
     Dosage: 10 MG, 2 TABLETS EVERY 3 TO 4 HOURS AS NEEDED
  7. HYDROCODONE [Concomitant]
     Active Substance: HYDROCODONE
     Indication: HEADACHE
     Dosage: 10 MG, 2 TABLETS EVERY 3 TO 4 HOURS AS NEEDED
  8. SEROQUEL [Suspect]
     Active Substance: QUETIAPINE FUMARATE
     Indication: BIPOLAR DISORDER
     Route: 048
     Dates: start: 1995, end: 201506
  9. HYDROCODONE [Concomitant]
     Active Substance: HYDROCODONE
     Indication: FOOT OPERATION
     Dosage: 10 MG, 1 TO 2 TABLETS EVERY 6 HOURS AS NEEDED
  10. THYROID [Concomitant]
     Active Substance: LEVOTHYROXINE\LIOTHYRONINE
     Indication: THYROID DISORDER
     Dates: start: 201511
  11. VITAMIN D [Concomitant]
     Active Substance: CHOLECALCIFEROL
     Indication: VITAMIN SUPPLEMENTATION
     Dosage: DAILY
     Route: 065
  12. HYDROCODONE [Concomitant]
     Active Substance: HYDROCODONE
     Indication: HEADACHE
     Dosage: 10 MG, 1 TO 2 TABLETS EVERY 6 HOURS AS NEEDED
  13. HYDROCODONE [Concomitant]
     Active Substance: HYDROCODONE
     Indication: GINGIVAL PAIN
     Dosage: 10 MG, 1 TO 2 TABLETS EVERY 3 TO 4 HOURS AS NEEDED
  14. MULTIVITAMIN [Concomitant]
     Active Substance: VITAMINS
     Indication: VITAMIN SUPPLEMENTATION
  15. SEROQUEL [Suspect]
     Active Substance: QUETIAPINE FUMARATE
     Indication: BIPOLAR DISORDER
     Route: 048
     Dates: start: 201506
  16. HYDROCODONE [Concomitant]
     Active Substance: HYDROCODONE
     Indication: FOOT OPERATION
     Dosage: 10 MG, 1 TO 2 TABLETS EVERY 3 TO 4 HOURS AS NEEDED
  17. SEROQUEL [Suspect]
     Active Substance: QUETIAPINE FUMARATE
     Indication: BIPOLAR DISORDER
     Route: 048
     Dates: start: 20151228
  18. HYDROCODONE [Concomitant]
     Active Substance: HYDROCODONE
     Indication: GINGIVAL PAIN
     Dosage: 10 MG, 1 TO 2 TABLETS EVERY 3 TO 4 HOURS AS NEEDED
  19. HYDROCODONE [Concomitant]
     Active Substance: HYDROCODONE
     Indication: FOOT OPERATION
     Dosage: 10 MG, 1 TO 2 TABLETS EVERY 3 TO 4 HOURS AS NEEDED
  20. HYDROCODONE [Concomitant]
     Active Substance: HYDROCODONE
     Indication: FOOT OPERATION
     Dosage: 10 MG, 2 TABLETS EVERY 3 TO 4 HOURS AS NEEDED
  21. XANAX [Concomitant]
     Active Substance: ALPRAZOLAM
     Indication: ANXIETY DISORDER
  22. HYDROCODONE [Concomitant]
     Active Substance: HYDROCODONE
     Indication: HEADACHE
     Dosage: 10 MG, 1 TO 2 TABLETS EVERY 3 TO 4 HOURS AS NEEDED
  23. THYROID [Concomitant]
     Active Substance: LEVOTHYROXINE\LIOTHYRONINE
     Indication: THYROID DISORDER
     Dates: end: 201511

REACTIONS (21)
  - Pain [Unknown]
  - Weight fluctuation [Unknown]
  - Ear haemorrhage [Unknown]
  - Drug dose omission [Unknown]
  - Bruxism [Unknown]
  - Hyperhidrosis [Unknown]
  - Alcoholism [Recovered/Resolved]
  - Drug dependence [Recovered/Resolved]
  - Thyroid disorder [Unknown]
  - Eating disorder [Unknown]
  - Mouth haemorrhage [Unknown]
  - Fatigue [Unknown]
  - Constipation [Unknown]
  - Gingival pain [Unknown]
  - Hot flush [Unknown]
  - Muscle twitching [Recovered/Resolved]
  - Depression [Unknown]
  - Mental disorder [Unknown]
  - Lacrimation increased [Unknown]
  - Photophobia [Unknown]
  - Headache [Unknown]

NARRATIVE: CASE EVENT DATE: 201506
